FAERS Safety Report 7688025-4 (Version None)
Quarter: 2011Q3

REPORT INFORMATION
  Report Type: 
  Country: None (occurrence: None)
  Receive Date: 20110817
  Receipt Date: 20110809
  Transmission Date: 20111222
  Serious: No
  Sender: FDA-Public Use
  Company Number: US-PFIZER INC-A020558

PATIENT
  Sex: Female
  Weight: 78 kg

DRUGS (7)
  1. ZOLOFT [Interacting]
     Dosage: 50 MG, DAILY
     Route: 048
     Dates: start: 20000513, end: 20110624
  2. SERTRALINE HYDROCHLORIDE [Suspect]
     Dosage: UNK
  3. BISOPROLOL FUMARATE AND HYDROCHLOROTHIAZIDE [Interacting]
     Indication: BLOOD PRESSURE ABNORMAL
     Dosage: DAILY
  4. ZOLOFT [Interacting]
     Dosage: 50 MG, UNK
  5. ZOLOFT [Interacting]
     Dosage: 100 MG, UNK
  6. ZIAC [Concomitant]
     Indication: BLOOD PRESSURE ABNORMAL
     Dosage: UNK
     Route: 048
     Dates: start: 19930101
  7. ZOLOFT [Interacting]
     Indication: DEPRESSION
     Dosage: 25 MG, 1X/DAY

REACTIONS (8)
  - DRUG INTERACTION [None]
  - APATHY [None]
  - INSOMNIA [None]
  - DRUG INTOLERANCE [None]
  - ABNORMAL DREAMS [None]
  - HEADACHE [None]
  - FATIGUE [None]
  - SOMNOLENCE [None]
